FAERS Safety Report 12528128 (Version 4)
Quarter: 2016Q4

REPORT INFORMATION
  Report Type: Spontaneous
  Country: US (occurrence: US)
  Receive Date: 20160705
  Receipt Date: 20161109
  Transmission Date: 20170207
  Serious: Yes (Death)
  Sender: FDA-Public Use
  Company Number: US-PFIZER INC-2016320703

PATIENT
  Age: 57 Year
  Sex: Female

DRUGS (1)
  1. TIKOSYN [Suspect]
     Active Substance: DOFETILIDE
     Indication: ATRIAL FIBRILLATION
     Dosage: 0.5 MG, 2X/DAY
     Dates: start: 2008

REACTIONS (3)
  - Uterine cancer [Fatal]
  - Ovarian cancer [Fatal]
  - Cervix carcinoma [Fatal]

NARRATIVE: CASE EVENT DATE: 2008
